FAERS Safety Report 6547900-4 (Version None)
Quarter: 2010Q1

REPORT INFORMATION
  Report Type: 
  Country: None (occurrence: None)
  Receive Date: 20100124
  Receipt Date: 20091118
  Transmission Date: 20100710
  Serious: No
  Sender: FDA-Public Use
  Company Number: US-ALEXION-A200901003

PATIENT
  Sex: Female
  Weight: 64.6 kg

DRUGS (6)
  1. SOLIRIS [Suspect]
     Indication: PAROXYSMAL NOCTURNAL HAEMOGLOBINURIA
     Dosage: 600 MG, QWX4
     Route: 042
     Dates: start: 20091113, end: 20091204
  2. OXYCONTIN [Concomitant]
     Dosage: 20 MG, Q12H
     Route: 048
  3. LOVENOX [Concomitant]
     Dosage: 60 MG, BID
     Route: 058
  4. COUMADIN [Concomitant]
     Dosage: 8 MG, QD
     Route: 048
  5. ALPRAZOLAM [Concomitant]
     Dosage: 0.5 MG, PRN
     Route: 048
  6. OXYCODONE [Concomitant]
     Dosage: 5-10 MG Q4H
     Route: 048

REACTIONS (2)
  - BACK PAIN [None]
  - MUSCLE SPASMS [None]
